FAERS Safety Report 11652211 (Version 2)
Quarter: 2015Q4

REPORT INFORMATION
  Report Type: Spontaneous
  Country: US (occurrence: US)
  Receive Date: 20151022
  Receipt Date: 20151221
  Transmission Date: 20160304
  Serious: Yes (Hospitalization)
  Sender: FDA-Public Use
  Company Number: US-JNJFOC-20151011080

PATIENT
  Sex: Male
  Weight: 128.82 kg

DRUGS (20)
  1. FENOFIBRATE. [Concomitant]
     Active Substance: FENOFIBRATE
     Route: 065
  2. GABAPENTIN. [Concomitant]
     Active Substance: GABAPENTIN
     Route: 065
  3. FISH OIL [Concomitant]
     Active Substance: FISH OIL
     Route: 065
  4. HYDROCODONE/ACETAMINOPHEN [Concomitant]
     Active Substance: ACETAMINOPHEN\HYDROCODONE
     Route: 065
  5. PIOGLITAZONE HCL [Concomitant]
     Active Substance: PIOGLITAZONE
     Route: 065
     Dates: start: 20151014
  6. ASPIRIN. [Concomitant]
     Active Substance: ASPIRIN
     Route: 065
  7. INSULIN ASPART [Concomitant]
     Active Substance: INSULIN ASPART
     Route: 065
  8. INVOKANA [Suspect]
     Active Substance: CANAGLIFLOZIN
     Indication: TYPE 2 DIABETES MELLITUS
     Route: 048
     Dates: start: 20150128, end: 20150930
  9. VITAMIN D3 [Concomitant]
     Active Substance: CHOLECALCIFEROL
     Route: 065
  10. ESCITALOPRAM OXALATE. [Concomitant]
     Active Substance: ESCITALOPRAM OXALATE
     Route: 065
  11. CRESTOR [Concomitant]
     Active Substance: ROSUVASTATIN CALCIUM
     Route: 065
  12. PIOGLITAZONE. [Concomitant]
     Active Substance: PIOGLITAZONE
     Indication: DIABETES MELLITUS
     Route: 065
  13. INSULIN GLARGINE [Concomitant]
     Active Substance: INSULIN GLARGINE
     Indication: DIABETES MELLITUS
     Route: 065
  14. BUPROPION. [Concomitant]
     Active Substance: BUPROPION
     Route: 065
  15. NIACIN. [Concomitant]
     Active Substance: NIACIN
     Route: 065
  16. LISINOPRIL. [Concomitant]
     Active Substance: LISINOPRIL
     Route: 065
  17. IBUPROFEN. [Concomitant]
     Active Substance: IBUPROFEN
     Route: 065
  18. METFORMIN [Suspect]
     Active Substance: METFORMIN HYDROCHLORIDE
     Indication: DIABETES MELLITUS
     Route: 065
  19. LANTUS [Concomitant]
     Active Substance: INSULIN GLARGINE
     Route: 065
  20. ACTOS [Concomitant]
     Active Substance: PIOGLITAZONE HYDROCHLORIDE
     Indication: DIABETES MELLITUS
     Route: 065

REACTIONS (4)
  - Renal injury [Unknown]
  - Meningoencephalitis herpetic [Unknown]
  - CSF white blood cell count increased [Unknown]
  - Metabolic acidosis [Unknown]

NARRATIVE: CASE EVENT DATE: 2015
